FAERS Safety Report 16141753 (Version 12)
Quarter: 2021Q2

REPORT INFORMATION
  Report Type: Spontaneous
  Country: US (occurrence: US)
  Receive Date: 20190401
  Receipt Date: 20210423
  Transmission Date: 20210716
  Serious: Yes (Other)
  Sender: FDA-Public Use
  Company Number: US-PFIZER INC-2019134291

PATIENT
  Age: 71 Year
  Sex: Female

DRUGS (1)
  1. IBRANCE [Suspect]
     Active Substance: PALBOCICLIB
     Indication: BREAST CANCER METASTATIC
     Dosage: 100 MG, UNK

REACTIONS (11)
  - Hypersomnia [Unknown]
  - Visual impairment [Unknown]
  - Dyspnoea [Unknown]
  - Blood count abnormal [Unknown]
  - Cardiac disorder [Unknown]
  - Vision blurred [Unknown]
  - Peripheral swelling [Unknown]
  - Fatigue [Unknown]
  - Spinal fracture [Unknown]
  - COVID-19 [Unknown]
  - Mobility decreased [Unknown]
